FAERS Safety Report 5400028-9 (Version None)
Quarter: 2007Q3

REPORT INFORMATION
  Report Type: 
  Country: None (occurrence: None)
  Receive Date: 20070730
  Receipt Date: 20070727
  Transmission Date: 20080115
  Serious: Yes (Other)
  Sender: FDA-Public Use
  Company Number: JP-RB-007505-07

PATIENT
  Age: 49 Year
  Sex: Male

DRUGS (7)
  1. LEPETAN [Suspect]
     Indication: ANAESTHESIA
     Route: 041
  2. SEVOFLURANE [Concomitant]
     Indication: ANAESTHESIA
     Dosage: DOSAGE AND FREQUENCY UNKNOWN
     Route: 045
  3. NITROUS OXIDE [Concomitant]
     Dosage: DOSAGE AND FREQUENCY UNKNOWN
     Route: 045
  4. PROPOFOL [Concomitant]
     Indication: ANAESTHESIA
     Dosage: 30 MG/HR
     Route: 041
  5. DROPERIDOL [Concomitant]
     Indication: ANAESTHESIA
     Route: 041
  6. VECURONIUM BROMIDE [Concomitant]
     Indication: ANAESTHESIA
     Route: 041
  7. HYDROCORTISONE SODIUM SUCCINATE [Concomitant]
     Indication: LARYNGEAL OEDEMA
     Route: 041

REACTIONS (4)
  - DRUG EFFECT PROLONGED [None]
  - GLOSSOPTOSIS [None]
  - RESPIRATORY ACIDOSIS [None]
  - RESPIRATORY DEPRESSION [None]
